FAERS Safety Report 5240011-X (Version None)
Quarter: 2007Q1

REPORT INFORMATION
  Report Type: 
  Country: None (occurrence: None)
  Receive Date: 20070216
  Receipt Date: 20070209
  Transmission Date: 20070707
  Serious: Yes (Disabling)
  Sender: FDA-Public Use
  Company Number: GB-PFIZER INC-2007006310

PATIENT
  Age: 83 Year
  Sex: Female

DRUGS (2)
  1. EXEMESTANE [Suspect]
     Indication: BREAST CANCER
     Route: 048
  2. OMEPRAZOLE [Interacting]

REACTIONS (3)
  - CHEST DISCOMFORT [None]
  - DRUG INTERACTION [None]
  - VOMITING [None]
